FAERS Safety Report 8535026-X (Version None)
Quarter: 2012Q3

REPORT INFORMATION
  Report Type: 
  Country: None (occurrence: None)
  Receive Date: 20120724
  Receipt Date: 20120717
  Transmission Date: 20120928
  Serious: Yes (Other)
  Sender: FDA-Public Use
  Company Number: BR-PFIZER INC-2012102145

PATIENT
  Age: 74 Year
  Sex: Female
  Weight: 60 kg

DRUGS (8)
  1. XALATAN [Suspect]
     Indication: INTRAOCULAR PRESSURE INCREASED
     Dosage: 1.5 UG (ONE DROP IN THE LEFT EYE), 1X/DAY
     Route: 047
  2. LIPITOR [Suspect]
     Indication: BLOOD CHOLESTEROL INCREASED
     Dosage: 10 MG, 1X/DAY
     Dates: start: 20070101
  3. OXIGEN [Concomitant]
  4. XALATAN [Suspect]
     Indication: GLAUCOMA
  5. ALENDRONATE SODIUM [Concomitant]
  6. GINKGO BILOBA [Concomitant]
  7. XALATAN [Suspect]
     Indication: PAIN
     Dosage: 2 OR 3 DROPS IN BOTH EYES, ONCE DAILY
     Dates: start: 20070101
  8. METHOTREXATE [Concomitant]

REACTIONS (3)
  - GLAUCOMA [None]
  - BLINDNESS UNILATERAL [None]
  - INTRAOCULAR PRESSURE INCREASED [None]
